FAERS Safety Report 16972033 (Version 1)
Quarter: 2019Q4

REPORT INFORMATION
  Report Type: Spontaneous
  Country: US (occurrence: US)
  Receive Date: 20191029
  Receipt Date: 20191029
  Transmission Date: 20200122
  Serious: Yes (Other)
  Sender: FDA-Public Use
  Company Number: US-NAPPMUNDI-USA-2019-0148882

PATIENT

DRUGS (1)
  1. OXYCONTIN [Suspect]
     Active Substance: OXYCODONE HYDROCHLORIDE
     Indication: SCOLIOSIS
     Route: 048

REACTIONS (5)
  - Back pain [Unknown]
  - Obsessive-compulsive disorder [Unknown]
  - Spinal fusion surgery [Unknown]
  - Myalgia [Unknown]
  - Anxiety [Unknown]
